FAERS Safety Report 8448856-X (Version None)
Quarter: 2012Q2

REPORT INFORMATION
  Report Type: 
  Country: None (occurrence: None)
  Receive Date: 20120613
  Receipt Date: 20120531
  Transmission Date: 20120825
  Serious: Yes (Other)
  Sender: FDA-Public Use
  Company Number: 217711

PATIENT
  Age: 77 Year
  Sex: Male

DRUGS (3)
  1. INNOHEP [Suspect]
     Indication: THROMBOSIS PROPHYLAXIS
     Dosage: DOSE: 3500 IE X1 DAILY, STRENGTH: 10.00 ANTI-XA IE/ML, SUBCUTANEOUS
     Route: 058
     Dates: start: 20120514
  2. PANTOLOC (PANTOPRAZOLE) [Concomitant]
  3. BURANA (IBUPROFEN) [Concomitant]

REACTIONS (3)
  - DRUG INEFFECTIVE [None]
  - PULMONARY EMBOLISM [None]
  - PRODUCT QUALITY ISSUE [None]
